FAERS Safety Report 15742440 (Version 4)
Quarter: 2019Q2

REPORT INFORMATION
  Report Type: Spontaneous
  Country: US (occurrence: US)
  Receive Date: 20181219
  Receipt Date: 20190426
  Transmission Date: 20190711
  Serious: Yes (Hospitalization)
  Sender: FDA-Public Use
  Company Number: US-VIFOR (INTERNATIONAL) INC.-VIT-2018-12316

PATIENT
  Sex: Female
  Weight: 97 kg

DRUGS (38)
  1. LOTRISONE [Concomitant]
     Active Substance: BETAMETHASONE DIPROPIONATE\CLOTRIMAZOLE
  2. ENDOCET [Concomitant]
     Active Substance: ACETAMINOPHEN\OXYCODONE HYDROCHLORIDE
  3. ISOSORBIDE MONONITRATE. [Concomitant]
     Active Substance: ISOSORBIDE MONONITRATE
  4. LEVOTHYROXINE SODIUM. [Concomitant]
     Active Substance: LEVOTHYROXINE SODIUM
  5. MAGNESIUM OXIDE. [Concomitant]
     Active Substance: MAGNESIUM OXIDE
  6. NITROSTAT [Concomitant]
     Active Substance: NITROGLYCERIN
  7. VITAMIN D3 [Concomitant]
     Active Substance: CHOLECALCIFEROL
  8. FENOFIBRATE. [Concomitant]
     Active Substance: FENOFIBRATE
  9. KIONEX [Concomitant]
     Active Substance: SODIUM POLYSTYRENE SULFONATE
  10. VELTASSA [Suspect]
     Active Substance: PATIROMER
     Indication: HYPERKALAEMIA
     Route: 048
     Dates: start: 20160325
  11. CALCITRATE [Concomitant]
     Active Substance: CALCIUM CITRATE
  12. ALLOPURINOL. [Concomitant]
     Active Substance: ALLOPURINOL
  13. HYDROXYZINE HCL [Concomitant]
     Active Substance: HYDROXYZINE HYDROCHLORIDE
  14. BUSPIRONE HCL [Concomitant]
     Active Substance: BUSPIRONE HYDROCHLORIDE
  15. ZOCOR [Concomitant]
     Active Substance: SIMVASTATIN
  16. CALCIUM CARBONATE. [Concomitant]
     Active Substance: CALCIUM CARBONATE
  17. VITAMIN B12 [Concomitant]
     Active Substance: CYANOCOBALAMIN
  18. NORTRIPTYLINE HCL [Concomitant]
     Active Substance: NORTRIPTYLINE HYDROCHLORIDE
  19. KETOCONAZOLE. [Concomitant]
     Active Substance: KETOCONAZOLE
  20. VELTASSA [Suspect]
     Active Substance: PATIROMER
     Indication: CHRONIC KIDNEY DISEASE
  21. TRIAMCINOLONE ACETONIDE. [Concomitant]
     Active Substance: TRIAMCINOLONE ACETONIDE
  22. FLUOROURACIL. [Concomitant]
     Active Substance: FLUOROURACIL
  23. COLCRYS [Concomitant]
     Active Substance: COLCHICINE
  24. HYDROXYZINE PAMOATE. [Concomitant]
     Active Substance: HYDROXYZINE PAMOATE
  25. GABAPENTIN. [Concomitant]
     Active Substance: GABAPENTIN
  26. NOVOLIN [Concomitant]
     Active Substance: INSULIN HUMAN
     Dosage: 70/30
  27. OMEPRAZOLE. [Concomitant]
     Active Substance: OMEPRAZOLE
  28. FERAHEME [Concomitant]
     Active Substance: FERUMOXYTOL NON-STOICHIOMETRIC MAGNETITE
  29. BUMETANIDE. [Concomitant]
     Active Substance: BUMETANIDE
  30. CYCLOBENZAPRINE HCL [Concomitant]
     Active Substance: CYCLOBENZAPRINE HYDROCHLORIDE
  31. RANEXA [Concomitant]
     Active Substance: RANOLAZINE
  32. CIPROFLOXACIN HCL [Concomitant]
     Active Substance: CIPROFLOXACIN HYDROCHLORIDE
  33. ASPIRIN. [Concomitant]
     Active Substance: ASPIRIN
  34. VELTASSA [Suspect]
     Active Substance: PATIROMER
     Indication: ESSENTIAL HYPERTENSION
     Dates: start: 20170228
  35. PLAVIX [Concomitant]
     Active Substance: CLOPIDOGREL BISULFATE
  36. AMOXICILLIN. [Concomitant]
     Active Substance: AMOXICILLIN
  37. CARVEDILOL. [Concomitant]
     Active Substance: CARVEDILOL
  38. LISINOPRIL. [Concomitant]
     Active Substance: LISINOPRIL

REACTIONS (2)
  - Hospitalisation [Unknown]
  - Fall [Unknown]
